FAERS Safety Report 5367431-7 (Version None)
Quarter: 2007Q2

REPORT INFORMATION
  Report Type: 
  Country: None (occurrence: None)
  Receive Date: 20070622
  Receipt Date: 20060915
  Transmission Date: 20071010
  Serious: No
  Sender: FDA-Public Use
  Company Number: US-ASTRAZENECA-2006UW18186

PATIENT
  Age: 72 Year
  Sex: Female
  Weight: 70.3 kg

DRUGS (5)
  1. PULMICORT RESPULES [Suspect]
     Indication: ASTHMA
     Route: 055
     Dates: start: 20060901
  2. PULMICORT RESPULES [Suspect]
     Indication: EMPHYSEMA
     Route: 055
     Dates: start: 20060901
  3. MULTIVITAMIN [Concomitant]
  4. MINERAL TAB [Concomitant]
  5. HERBS [Concomitant]

REACTIONS (3)
  - ABDOMINAL DISTENSION [None]
  - CHEST PAIN [None]
  - MUSCLE SPASMS [None]
